FAERS Safety Report 4478994-8 (Version None)
Quarter: 2004Q4

REPORT INFORMATION
  Report Type: 
  Country: None (occurrence: None)
  Receive Date: 20041015
  Receipt Date: 20041005
  Transmission Date: 20050328
  Serious: Yes (Hospitalization, Other)
  Sender: FDA-Public Use
  Company Number: WAES 0308USA02763

PATIENT
  Age: 72 Year
  Sex: Male

DRUGS (6)
  1. COZAAR [Suspect]
     Indication: HYPERTENSION
     Dosage: 25 MG/DAILY    PO  : 50 MG/DAILY   PO
     Route: 048
     Dates: start: 20011220, end: 20021017
  2. COZAAR [Suspect]
     Indication: HYPERTENSION
     Dosage: 25 MG/DAILY    PO  : 50 MG/DAILY   PO
     Route: 048
     Dates: start: 20021018
  3. BAYASPIRIN [Concomitant]
  4. LIPOVAS [Concomitant]
  5. NORVASC [Concomitant]
  6. [THERAPY UNSPECIFIED] [Concomitant]

REACTIONS (6)
  - BRONCHITIS ACUTE [None]
  - CEREBRAL INFARCTION [None]
  - DIZZINESS POSTURAL [None]
  - HOT FLUSH [None]
  - HYPERTENSION [None]
  - NASOPHARYNGITIS [None]
